FAERS Safety Report 7992059-X (Version None)
Quarter: 2011Q4

REPORT INFORMATION
  Report Type: 
  Country: None (occurrence: None)
  Receive Date: 20111219
  Receipt Date: 20110829
  Transmission Date: 20120403
  Serious: No
  Sender: FDA-Public Use
  Company Number: US-ASTRAZENECA-2011SE51872

PATIENT
  Age: 68 Year
  Sex: Male
  Weight: 86.2 kg

DRUGS (1)
  1. ROSUVASTATIN [Suspect]
     Route: 048

REACTIONS (4)
  - VISION BLURRED [None]
  - HEADACHE [None]
  - GASTRIC DISORDER [None]
  - MUSCLE DISORDER [None]
